FAERS Safety Report 9051513 (Version 1)
Quarter: 2013Q1

REPORT INFORMATION
  Report Type: Spontaneous
  Country: US (occurrence: US)
  Receive Date: 20130207
  Receipt Date: 20130207
  Transmission Date: 20140127
  Serious: Yes (Other)
  Sender: FDA-Public Use
  Company Number: US-AMGEN-USASP2012084453

PATIENT
  Age: 0 None
  Sex: Male

DRUGS (6)
  1. NEULASTA [Suspect]
     Dosage: 6 MG, Q2WK
     Route: 064
     Dates: start: 20120112, end: 20120223
  2. ADRIAMYCIN                         /00330901/ [Concomitant]
     Indication: BREAST CANCER
     Dosage: 107 UNK, Q2WK
     Route: 064
     Dates: start: 20120111, end: 20120222
  3. CYTOXAN [Concomitant]
     Indication: BREAST CANCER
     Dosage: 1068 UNK, Q2WK
     Route: 064
     Dates: start: 20120111, end: 20120222
  4. TAXOL [Concomitant]
     Indication: BREAST CANCER
     Dosage: 323 MG, Q2WK
     Route: 064
     Dates: start: 20120411, end: 20120523
  5. CELEXA                             /00582602/ [Concomitant]
     Indication: DEPRESSION
     Dosage: 20 MG, QD
     Route: 064
  6. DECADRON                           /00016001/ [Concomitant]
     Dosage: UNK
     Route: 064

REACTIONS (1)
  - Premature baby [Unknown]
